FAERS Safety Report 6598824-8 (Version None)
Quarter: 2010Q1

REPORT INFORMATION
  Report Type: 
  Country: None (occurrence: None)
  Receive Date: 20100217
  Receipt Date: 20100127
  Transmission Date: 20100710
  Serious: Yes (Death, Hospitalization)
  Sender: FDA-Public Use
  Company Number: 2009AC000070

PATIENT
  Age: 79 Year
  Sex: Male

DRUGS (40)
  1. DIGOXIN [Suspect]
     Indication: ATRIAL FIBRILLATION
     Dosage: 0.125 MG;QD; PO
     Route: 048
  2. TOPROL-XL [Concomitant]
  3. NORVASC [Concomitant]
  4. DILANTIN [Concomitant]
  5. ATIVAN [Concomitant]
  6. THEOPHYLLINE [Concomitant]
  7. ARICEPT [Concomitant]
  8. AMLODIPINE [Concomitant]
  9. JANTOVEN [Concomitant]
  10. METFORMIN HCL [Concomitant]
  11. METOPROLOL TARTRATE [Concomitant]
  12. ZOLPIDEM [Concomitant]
  13. NAMENDA [Concomitant]
  14. NITROFURAN [Concomitant]
  15. EFFERVESCENT [Concomitant]
  16. LOTREL [Concomitant]
  17. THEOPHYLLINE [Concomitant]
  18. LASIX [Concomitant]
  19. POTASSIUM [Concomitant]
  20. FERROUS SULFATE TAB [Concomitant]
  21. VITAMIN C [Concomitant]
  22. COLACE [Concomitant]
  23. ARICEPT [Concomitant]
  24. METFORMIN HYDROCHLORIDE [Concomitant]
  25. WARFARIN SODIUM [Concomitant]
  26. LOTREL [Concomitant]
  27. ZOLPIDEM [Concomitant]
  28. SULFAMETHOXAZOLE [Concomitant]
  29. AMLODIPINE [Concomitant]
  30. METFORMIN HYDROCHLORIDE [Concomitant]
  31. JANTOVEN [Concomitant]
  32. METOPROLOL TARTRATE [Concomitant]
  33. ARICEPT [Concomitant]
  34. FUROSEMIDE [Concomitant]
  35. WARFARIN SODIUM [Concomitant]
  36. TIMOLOL MALEATE [Concomitant]
  37. THEOPHYLLINE [Concomitant]
  38. LOTREL [Concomitant]
  39. MANDELAMINE [Concomitant]
  40. LUMIGAN [Concomitant]

REACTIONS (28)
  - ANAEMIA [None]
  - ANHEDONIA [None]
  - ANXIETY [None]
  - ARRHYTHMIA [None]
  - ATRIAL FIBRILLATION [None]
  - ATRIAL FLUTTER [None]
  - BALANCE DISORDER [None]
  - BLOOD GLUCOSE INCREASED [None]
  - CARDIAC FAILURE CONGESTIVE [None]
  - CARDIOACTIVE DRUG LEVEL DECREASED [None]
  - CHEST PAIN [None]
  - CONFUSIONAL STATE [None]
  - CONVULSION [None]
  - DECREASED APPETITE [None]
  - DIARRHOEA [None]
  - ECONOMIC PROBLEM [None]
  - FALL [None]
  - FATIGUE [None]
  - GASTRIC NEOPLASM [None]
  - HAEMORRHOIDS [None]
  - INJURY [None]
  - IRRITABILITY [None]
  - MENTAL STATUS CHANGES [None]
  - MITRAL VALVE DISEASE [None]
  - OEDEMA [None]
  - SICK SINUS SYNDROME [None]
  - UNRESPONSIVE TO STIMULI [None]
  - WHEEZING [None]
